FAERS Safety Report 4942411-1 (Version None)
Quarter: 2006Q1

REPORT INFORMATION
  Report Type: 
  Country: None (occurrence: None)
  Receive Date: 20060313
  Receipt Date: 20050201
  Transmission Date: 20060701
  Serious: No
  Sender: FDA-Public Use
  Company Number: US-GLAXOSMITHKLINE-A0543217A

PATIENT
  Age: 51 Year
  Sex: Male

DRUGS (3)
  1. NICORETTE [Suspect]
  2. COMMIT [Suspect]
  3. COMMIT [Suspect]

REACTIONS (3)
  - CHEST PAIN [None]
  - PAIN IN JAW [None]
  - WEIGHT INCREASED [None]
